FAERS Safety Report 4578510-6 (Version None)
Quarter: 2005Q1

REPORT INFORMATION
  Report Type: 
  Country: None (occurrence: None)
  Receive Date: 20050209
  Receipt Date: 20050128
  Transmission Date: 20050727
  Serious: Yes (Death)
  Sender: FDA-Public Use
  Company Number: A-CH2005-08742

PATIENT
  Age: 5 Year
  Sex: 0

DRUGS (2)
  1. TRACLEER [Suspect]
     Indication: PULMONARY HYPERTENSION
     Dosage: ORAL
     Route: 048
     Dates: start: 20041001
  2. BUSULFAN [Concomitant]

REACTIONS (1)
  - CARDIAC PROCEDURE COMPLICATION [None]
